FAERS Safety Report 8208455-1 (Version None)
Quarter: 2012Q1

REPORT INFORMATION
  Report Type: 
  Country: None (occurrence: None)
  Receive Date: 20120314
  Receipt Date: 20120312
  Transmission Date: 20120608
  Serious: Yes (Other)
  Sender: FDA-Public Use
  Company Number: IT-PFIZER INC-2012065525

PATIENT
  Age: 59 Year
  Sex: Female

DRUGS (4)
  1. LOSARTAN POTASSIUM [Concomitant]
  2. FLUOROURACIL [Suspect]
     Indication: RECTAL CANCER
     Dosage: 3710 MG, CYCLIC
     Route: 042
     Dates: start: 20100819
  3. IRINOTECAN HCL [Suspect]
     Indication: RECTAL CANCER
     Dosage: 240 MG, CYCLIC
     Route: 042
     Dates: start: 20100819
  4. ERBITUX [Suspect]
     Indication: RECTAL CANCER
     Dosage: 410 MG, CYCLIC
     Route: 042
     Dates: start: 20100819

REACTIONS (2)
  - NEUTROPENIA [None]
  - NAIL TOXICITY [None]
